FAERS Safety Report 4396890-1 (Version None)
Quarter: 2004Q3

REPORT INFORMATION
  Report Type: 
  Country: None (occurrence: None)
  Receive Date: 20040713
  Receipt Date: 20040713
  Transmission Date: 20050211
  Serious: Yes (Hospitalization)
  Sender: FDA-Public Use
  Company Number: None

PATIENT
  Sex: Female
  Weight: 69.8539 kg

DRUGS (7)
  1. SOLU-MEDROL [Suspect]
     Indication: MULTIPLE SCLEROSIS
     Dosage: 1 GRAM IVPB
     Route: 042
     Dates: start: 20040712
  2. BACLOFEN [Concomitant]
  3. ZOLOFT [Concomitant]
  4. MIDRIN [Concomitant]
  5. CARDIOZEM [Concomitant]
  6. PREMARIN [Concomitant]
  7. PROTONIX [Concomitant]

REACTIONS (4)
  - BLOOD PRESSURE DECREASED [None]
  - DYSPNOEA [None]
  - FEELING ABNORMAL [None]
  - HEART RATE INCREASED [None]
